FAERS Safety Report 25844928 (Version 3)
Quarter: 2025Q4

REPORT INFORMATION
  Report Type: Report from Study
  Country: US (occurrence: US)
  Receive Date: 20250925
  Receipt Date: 20251122
  Transmission Date: 20260118
  Serious: Yes (Hospitalization, Other)
  Sender: UNITED THERAPEUTICS
  Company Number: US-UNITED THERAPEUTICS-UNT-2025-025457

PATIENT
  Sex: Male

DRUGS (10)
  1. TREPROSTINIL [Suspect]
     Active Substance: TREPROSTINIL
     Indication: Pulmonary arterial hypertension
     Dosage: 4 MG (1 TABLET OF 2.5 MG, 1 MG EACH AND 2 TABLETS OF 0.25 MG), TID
     Dates: start: 2025, end: 202509
  2. TREPROSTINIL [Suspect]
     Active Substance: TREPROSTINIL
     Dosage: UNK (RESTARTED)
  3. TREPROSTINIL [Suspect]
     Active Substance: TREPROSTINIL
     Dosage: 4 MG (1 TABLET OF 2.5 MG, 1 MG EACH AND 2 TABLETS OF 0.25 MG), TID
     Dates: start: 20250913, end: 2025
  4. TREPROSTINIL [Suspect]
     Active Substance: TREPROSTINIL
     Dosage: 3 MG (2 TABLETS OF 0.25 MG AND 1 TABLET OF 2.5 MG), TID
     Dates: start: 2025
  5. TREPROSTINIL [Suspect]
     Active Substance: TREPROSTINIL
     Dosage: UNK
  6. ORENITRAM [Suspect]
     Active Substance: TREPROSTINIL
     Indication: Pulmonary arterial hypertension
     Dosage: UNK
  7. ORENITRAM [Suspect]
     Active Substance: TREPROSTINIL
     Indication: Pulmonary arterial hypertension
     Dosage: UNK
  8. ORENITRAM [Suspect]
     Active Substance: TREPROSTINIL
     Indication: Pulmonary arterial hypertension
     Dosage: UNK
  9. OPSUMIT [Concomitant]
     Active Substance: MACITENTAN
     Indication: Product used for unknown indication
     Dosage: UNK
  10. WINREVAIR [Concomitant]
     Active Substance: SOTATERCEPT-CSRK
     Indication: Product used for unknown indication
     Dosage: UNK

REACTIONS (5)
  - Cerebral haemorrhage [Unknown]
  - Diarrhoea [Not Recovered/Not Resolved]
  - Peripheral swelling [Unknown]
  - Abnormal weight gain [Unknown]
  - Product dose omission issue [Recovered/Resolved]

NARRATIVE: CASE EVENT DATE: 20250101
